FAERS Safety Report 4368461-4 (Version None)
Quarter: 2004Q2

REPORT INFORMATION
  Report Type: 
  Country: None (occurrence: None)
  Receive Date: 20040528
  Receipt Date: 20040512
  Transmission Date: 20050107
  Serious: Yes (Hospitalization)
  Sender: FDA-Public Use
  Company Number: 2004-DE-02753UP(1)

PATIENT
  Age: 76 Year
  Sex: Female

DRUGS (4)
  1. MIRAPEX [Suspect]
     Indication: PARKINSON'S DISEASE
     Dosage: 0.264 MG, PO, .0.88 MG 3 IN 1 D
     Route: 048
     Dates: start: 20040405
  2. ZOLOFT [Suspect]
  3. MODURETIC 5-50 [Suspect]
  4. AKINETON [Concomitant]

REACTIONS (7)
  - ANOREXIA [None]
  - COMA [None]
  - CONFUSIONAL STATE [None]
  - HYPERTENSION [None]
  - HYPONATRAEMIA [None]
  - MARKEDLY REDUCED DIETARY INTAKE [None]
  - NAUSEA [None]
